FAERS Safety Report 5917600-X (Version None)
Quarter: 2008Q4

REPORT INFORMATION
  Report Type: 
  Country: None (occurrence: None)
  Receive Date: 20081014
  Receipt Date: 20081007
  Transmission Date: 20090506
  Serious: Yes (Hospitalization)
  Sender: FDA-Public Use
  Company Number: AU-ABBOTT-08P-008-0470328-00

PATIENT
  Sex: Male
  Weight: 75 kg

DRUGS (2)
  1. RITONAVIR SOFT GELATIN CAPSULES [Suspect]
     Indication: HIV INFECTION
     Route: 048
     Dates: start: 20051221
  2. TMC114 [Concomitant]
     Indication: HIV INFECTION

REACTIONS (1)
  - DEAFNESS UNILATERAL [None]
